FAERS Safety Report 6358924-4 (Version None)
Quarter: 2009Q3

REPORT INFORMATION
  Report Type: 
  Country: None (occurrence: None)
  Receive Date: 20090914
  Receipt Date: 20090908
  Transmission Date: 20100115
  Serious: Yes (Other)
  Sender: FDA-Public Use
  Company Number: CHPA2009US18279

PATIENT
  Age: 26 Year
  Sex: Male
  Weight: 104.3 kg

DRUGS (1)
  1. MAALOX MS TOTAL STOMACH RELIEF (NCH)(BISMUTH SUBSALICYLATE) SUSPENSION [Suspect]
     Indication: ABDOMINAL DISCOMFORT
     Dosage: 6 TSP, QID, ORAL
     Route: 048
     Dates: start: 20090907, end: 20090907

REACTIONS (1)
  - DEAFNESS [None]
